FAERS Safety Report 4924125-7 (Version None)
Quarter: 2006Q1

REPORT INFORMATION
  Report Type: 
  Country: None (occurrence: None)
  Receive Date: 20060227
  Receipt Date: 20051117
  Transmission Date: 20060701
  Serious: No
  Sender: FDA-Public Use
  Company Number: US-GLAXOSMITHKLINE-A0582731A

PATIENT
  Age: 48 Year
  Sex: Male

DRUGS (7)
  1. WELLBUTRIN XL [Suspect]
     Indication: DEPRESSION
     Dosage: 150MG PER DAY
     Route: 048
     Dates: start: 20051116
  2. HEART MEDICATION [Concomitant]
  3. DIABETES MEDICATION [Concomitant]
  4. INSULIN [Concomitant]
  5. ANTIDEPRESSANT [Concomitant]
  6. ANTI-PSYCHOTIC MEDICATION [Concomitant]
  7. SLEEPING MEDICATION [Concomitant]

REACTIONS (1)
  - INSOMNIA [None]
